FAERS Safety Report 8519554-9 (Version None)
Quarter: 2012Q3

REPORT INFORMATION
  Report Type: 
  Country: None (occurrence: None)
  Receive Date: 20120718
  Receipt Date: 20120709
  Transmission Date: 20120928
  Serious: Yes (Hospitalization, Other)
  Sender: FDA-Public Use
  Company Number: US-ABBOTT-12P-163-0954530-00

PATIENT
  Sex: Male
  Weight: 81.72 kg

DRUGS (2)
  1. PENTASA [Concomitant]
     Indication: CROHN'S DISEASE
  2. HUMIRA [Suspect]
     Indication: CROHN'S DISEASE

REACTIONS (7)
  - INTESTINAL PERFORATION [None]
  - INFLAMMATION [None]
  - ABDOMINAL PAIN LOWER [None]
  - ABSCESS [None]
  - CROHN'S DISEASE [None]
  - FISTULA [None]
  - GASTROINTESTINAL INFECTION [None]
